FAERS Safety Report 25575960 (Version 1)
Quarter: 2025Q3

REPORT INFORMATION
  Report Type: Report from Study
  Country: US (occurrence: US)
  Receive Date: 20250718
  Receipt Date: 20250718
  Transmission Date: 20251020
  Serious: Yes (Other)
  Sender: ALEXION PHARMACEUTICALS
  Company Number: US-AstraZeneca-CH-00892040A

PATIENT
  Age: 44 Year
  Sex: Female
  Weight: 59.4 kg

DRUGS (21)
  1. TEZSPIRE [Suspect]
     Active Substance: TEZEPELUMAB-EKKO
     Indication: Constipation
     Dosage: 210 MILLIGRAM, Q4W
     Dates: start: 20250409
  2. TEZSPIRE [Suspect]
     Active Substance: TEZEPELUMAB-EKKO
     Indication: Asthma
  3. AIRSUPRA [Suspect]
     Active Substance: ALBUTEROL SULFATE\BUDESONIDE
  4. AZELASTINE [Suspect]
     Active Substance: AZELASTINE
  5. ALBUTEROL SULFATE [Concomitant]
     Active Substance: ALBUTEROL SULFATE
  6. MALARONE [Concomitant]
     Active Substance: ATOVAQUONE\PROGUANIL HYDROCHLORIDE
  7. BIOTIN [Concomitant]
     Active Substance: BIOTIN
  8. CALCIUM CARBONATE [Concomitant]
     Active Substance: CALCIUM CARBONATE
  9. VITAMIN D3 [Concomitant]
     Active Substance: CHOLECALCIFEROL
  10. ZYRTEC [Concomitant]
     Active Substance: CETIRIZINE HYDROCHLORIDE
  11. COLLAGEN [Concomitant]
     Active Substance: COLLAGEN
  12. VOLTAREN [Concomitant]
     Active Substance: DICLOFENAC SODIUM
  13. TRELEGY ELLIPTA [Concomitant]
     Active Substance: FLUTICASONE FUROATE\UMECLIDINIUM BROMIDE\VILANTEROL TRIFENATATE
  14. GLUCOSAMINE [Concomitant]
     Active Substance: GLUCOSAMINE
  15. MAGNESIUM [Concomitant]
     Active Substance: MAGNESIUM
  16. MEDROL [Concomitant]
     Active Substance: METHYLPREDNISOLONE
  17. SINGULAIR [Concomitant]
     Active Substance: MONTELUKAST SODIUM
  18. VITAMINS [Concomitant]
     Active Substance: VITAMINS
  19. MIRALAX [Concomitant]
     Active Substance: POLYETHYLENE GLYCOL 3350
  20. SCOPOLAMINE [Concomitant]
     Active Substance: SCOPOLAMINE
  21. HERBALS\TURMERIC [Concomitant]
     Active Substance: HERBALS\TURMERIC

REACTIONS (19)
  - Abdominal hernia [Unknown]
  - Umbilical hernia [Unknown]
  - Aspergillus infection [Unknown]
  - Dyspnoea [Unknown]
  - Wheezing [Unknown]
  - Cough [Unknown]
  - Decreased activity [Unknown]
  - Rhinorrhoea [Unknown]
  - Dizziness [Unknown]
  - Breath sounds abnormal [Unknown]
  - Rhonchi [Unknown]
  - Hypersensitivity [Unknown]
  - Productive cough [Unknown]
  - Epistaxis [Unknown]
  - Abdominal pain [Unknown]
  - Breast pain [Unknown]
  - Full blood count abnormal [Unknown]
  - Computerised tomogram thorax abnormal [Unknown]
  - Nasal dryness [Unknown]
